FAERS Safety Report 5594190-5 (Version None)
Quarter: 2008Q1

REPORT INFORMATION
  Report Type: 
  Country: None (occurrence: None)
  Receive Date: 20080114
  Receipt Date: 20080102
  Transmission Date: 20080703
  Serious: Yes (Other)
  Sender: FDA-Public Use
  Company Number: US-WYE-H01958208

PATIENT
  Age: 77 Year
  Sex: Female

DRUGS (4)
  1. CENTRUM SILVER (MULTIVITAMIN/MULTIMINERAL, TABLET) [Suspect]
     Indication: NUTRITIONAL SUPPORT
     Dosage: 1 TABLET 1X PER 1 DAY ORAL
     Route: 048
     Dates: start: 19900101, end: 20071122
  2. PLAVIX [Concomitant]
  3. SIMVASTATIN [Concomitant]
  4. ACETAMINOPHEN [Concomitant]

REACTIONS (1)
  - CEREBROVASCULAR ACCIDENT [None]
